FAERS Safety Report 13716690 (Version 2)
Quarter: 2017Q3

REPORT INFORMATION
  Report Type: Spontaneous
  Country: JP (occurrence: JP)
  Receive Date: 20170705
  Receipt Date: 20170712
  Transmission Date: 20171127
  Serious: Yes (Other)
  Sender: FDA-Public Use
  Company Number: JP-BAYER-2017-122597

PATIENT
  Age: 61 Year
  Sex: Male

DRUGS (2)
  1. XOFIGO [Suspect]
     Active Substance: RADIUM RA-223 DICHLORIDE
     Indication: PROSTATE CANCER STAGE IV
     Dosage: 6 TIMES
     Route: 042
     Dates: start: 20170118, end: 20170609
  2. XOFIGO [Suspect]
     Active Substance: RADIUM RA-223 DICHLORIDE
     Indication: METASTASES TO BONE

REACTIONS (4)
  - Spinal cord compression [None]
  - Bone pain [None]
  - Hypoaesthesia [None]
  - Bone neoplasm [None]

NARRATIVE: CASE EVENT DATE: 2017
